FAERS Safety Report 8813797 (Version 4)
Quarter: 2013Q2

REPORT INFORMATION
  Report Type: Spontaneous
  Country: US (occurrence: US)
  Receive Date: 20120928
  Receipt Date: 20130515
  Transmission Date: 20140414
  Serious: No
  Sender: FDA-Public Use
  Company Number: US-BIOGENIDEC-2012BI039544

PATIENT
  Sex: Female

DRUGS (3)
  1. TYSABRI [Suspect]
     Indication: MULTIPLE SCLEROSIS
     Route: 042
     Dates: start: 20120723, end: 20130404
  2. TYSABRI [Suspect]
     Indication: MULTIPLE SCLEROSIS
     Route: 042
     Dates: start: 20130404
  3. AVONEX [Concomitant]
     Route: 030

REACTIONS (16)
  - Drug ineffective [Not Recovered/Not Resolved]
  - Multiple sclerosis [Not Recovered/Not Resolved]
  - Irritability [Recovered/Resolved]
  - Arthritis [Recovered/Resolved]
  - Pain [Recovered/Resolved]
  - Gait disturbance [Recovered/Resolved]
  - Balance disorder [Recovered/Resolved]
  - Hypoaesthesia [Recovered/Resolved]
  - Dyskinesia [Recovered/Resolved]
  - Dysgraphia [Recovered/Resolved]
  - Secondary progressive multiple sclerosis [Recovered/Resolved]
  - General symptom [Recovered/Resolved with Sequelae]
  - Speech disorder [Recovered/Resolved]
  - Aphasia [Recovered/Resolved]
  - Drug effect decreased [Recovered/Resolved with Sequelae]
  - Fatigue [Recovered/Resolved]
